FAERS Safety Report 12980323 (Version 3)
Quarter: 2018Q2

REPORT INFORMATION
  Report Type: Report from Study
  Country: DE (occurrence: DE)
  Receive Date: 20161128
  Receipt Date: 20180430
  Transmission Date: 20180711
  Serious: Yes (Life-Threatening, Hospitalization)
  Sender: FDA-Public Use
  Company Number: DE-JNJFOC-20161115533

PATIENT
  Age: 67 Year
  Sex: Female
  Weight: 66 kg

DRUGS (10)
  1. STELARA [Suspect]
     Active Substance: USTEKINUMAB
     Indication: PSORIASIS
     Dosage: TOTAL NO.OF INJECTIONS RECEIVED 38
     Route: 058
     Dates: start: 20090615
  2. METOPROLOL. [Concomitant]
     Active Substance: METOPROLOL
     Route: 065
     Dates: start: 201705
  3. SUCRABEST [Concomitant]
     Active Substance: SUCRALFATE
     Route: 065
     Dates: start: 201705
  4. ARCOXIA [Concomitant]
     Active Substance: ETORICOXIB
     Indication: PRODUCT USED FOR UNKNOWN INDICATION
     Route: 065
  5. ATORVASTATIN [Concomitant]
     Active Substance: ATORVASTATIN
     Route: 065
     Dates: start: 201705
  6. RAMIPRIL. [Concomitant]
     Active Substance: RAMIPRIL
     Route: 065
     Dates: start: 201705
  7. AMLODIPINE [Concomitant]
     Active Substance: AMLODIPINE BESYLATE
     Route: 065
     Dates: start: 201705
  8. PANTOPRAZOLE [Concomitant]
     Active Substance: PANTOPRAZOLE
     Route: 065
     Dates: start: 201705
  9. CORVATON [Concomitant]
     Active Substance: MOLSIDOMINE
     Route: 065
     Dates: start: 201705
  10. SERTRALINE [Concomitant]
     Active Substance: SERTRALINE HYDROCHLORIDE
     Route: 065
     Dates: start: 201705

REACTIONS (6)
  - Hypertensive crisis [Unknown]
  - Cholangitis [Recovered/Resolved]
  - Coronary artery bypass [Unknown]
  - Giardiasis [Recovering/Resolving]
  - Gastric dysplasia [Recovering/Resolving]
  - Bile duct stone [Recovering/Resolving]

NARRATIVE: CASE EVENT DATE: 20160902
